FAERS Safety Report 4757781-7 (Version None)
Quarter: 2005Q3

REPORT INFORMATION
  Report Type: 
  Country: None (occurrence: None)
  Receive Date: 20050830
  Receipt Date: 20050818
  Transmission Date: 20060218
  Serious: Yes (Hospitalization)
  Sender: FDA-Public Use
  Company Number: 2005044729

PATIENT
  Age: 42 Year
  Sex: Female

DRUGS (11)
  1. AZITHROMYCIN [Suspect]
     Indication: BRONCHITIS
     Dosage: 500 MG, ORAL
     Route: 048
     Dates: start: 20050304, end: 20050306
  2. PL GRAN. (CAFFEINE, PROMETHAZINE METHYLENE, DISALICYLATE, SALICYLAMIDE [Concomitant]
  3. DASEN (SERRAPEPTASE) [Concomitant]
  4. MARZULENE S (LEVOGLUTAMIDE, SODIUM GUALENATE) [Concomitant]
  5. ALL OTHER THERAPEUTIC PRODUCTS (ALL OTHER THERAPEUTIC PRODUCTS [Concomitant]
  6. FLAVERIC (BENPROPERINE PHOSPHATE) [Concomitant]
  7. LOXONIN (LOXOPROFEN SODIUM) [Concomitant]
  8. CEFDINIR [Concomitant]
  9. MEIACT (CEFDITOREN PIVOXIL) [Concomitant]
  10. ALTAT (ROXATIDINE ACETATE HYDRCHLORIDE) [Concomitant]
  11. PREDNISOLONE [Concomitant]

REACTIONS (3)
  - EYE PAIN [None]
  - PARALYSIS [None]
  - TREMOR [None]
